FAERS Safety Report 21313782 (Version 1)
Quarter: 2022Q3

REPORT INFORMATION
  Report Type: Spontaneous
  Country: US (occurrence: US)
  Receive Date: 20220909
  Receipt Date: 20220909
  Transmission Date: 20221026
  Serious: Yes (Other)
  Sender: FDA-Public Use
  Company Number: US-ASTELLAS-2022US018219

PATIENT
  Sex: Male

DRUGS (1)
  1. XTANDI [Suspect]
     Active Substance: ENZALUTAMIDE
     Indication: Product used for unknown indication
     Dosage: 160 MG, ONCE DAILY (2, 80 MG TABLETS DAILY)
     Route: 065
     Dates: start: 202203

REACTIONS (3)
  - Weight decreased [Unknown]
  - Taste disorder [Unknown]
  - Asthenia [Unknown]
